FAERS Safety Report 8846846 (Version 3)
Quarter: 2012Q4

REPORT INFORMATION
  Report Type: 
  Country: US (occurrence: US)
  Receive Date: 20121018
  Receipt Date: 20121206
  Transmission Date: 20130627
  Serious: No
  Sender: FDA-Public Use
  Company Number: US-PFIZER INC-2012259222

PATIENT
  Age: 18 Year
  Sex: Female
  Weight: 54.42 kg

DRUGS (3)
  1. XANAX [Suspect]
     Indication: ANXIETY
     Dosage: 0.25 mg (1 tablet), twice daily as needed
     Route: 048
     Dates: start: 20110805
  2. LOESTRIN 24 FE [Concomitant]
     Indication: BIRTH CONTROL
     Dosage: 20 mg, daily
     Dates: start: 2009
  3. LOESTRIN 24 FE [Concomitant]
     Indication: POLYCYSTIC OVARIAN SYNDROME

REACTIONS (2)
  - Wrong technique in drug usage process [Unknown]
  - Hypoaesthesia oral [Recovered/Resolved]
